FAERS Safety Report 18722764 (Version 3)
Quarter: 2021Q1

REPORT INFORMATION
  Report Type: Spontaneous
  Country: US (occurrence: US)
  Receive Date: 20210111
  Receipt Date: 20210317
  Transmission Date: 20210419
  Serious: No
  Sender: FDA-Public Use
  Company Number: US-ASTRAZENECA-2020SF73730

PATIENT
  Age: 937 Month
  Sex: Male
  Weight: 95.3 kg

DRUGS (1)
  1. BYDUREON BCISE [Suspect]
     Active Substance: EXENATIDE
     Dosage: 2.0MG UNKNOWN
     Route: 065

REACTIONS (8)
  - COVID-19 [Unknown]
  - Needle issue [Unknown]
  - Product use issue [Unknown]
  - Device issue [Unknown]
  - Injection site haemorrhage [Unknown]
  - Malaise [Unknown]
  - Device leakage [Unknown]
  - Fatigue [Unknown]

NARRATIVE: CASE EVENT DATE: 202012
